FAERS Safety Report 7429824-3 (Version None)
Quarter: 2011Q2

REPORT INFORMATION
  Report Type: 
  Country: None (occurrence: None)
  Receive Date: 20110414
  Receipt Date: 20110401
  Transmission Date: 20111010
  Serious: Yes (Hospitalization)
  Sender: FDA-Public Use
  Company Number: UTC-006075

PATIENT
  Age: 43 Year
  Sex: Male
  Weight: 57 kg

DRUGS (4)
  1. REVATIO [Concomitant]
  2. LETAIRIS [Concomitant]
  3. REMODULIN [Suspect]
     Indication: PULMONARY ARTERIAL HYPERTENSION
     Dosage: 0.09 UG/KG (0.09 UG/KG,1 IN 1 D),INTRAVENOUS
     Route: 042
     Dates: start: 20080722
  4. COUMADIN [Concomitant]

REACTIONS (2)
  - CONFUSIONAL STATE [None]
  - CATATONIA [None]
